FAERS Safety Report 4471408-3 (Version None)
Quarter: 2004Q4

REPORT INFORMATION
  Report Type: 
  Country: None (occurrence: None)
  Receive Date: 20041007
  Receipt Date: 20041001
  Transmission Date: 20050328
  Serious: Yes (Hospitalization)
  Sender: FDA-Public Use
  Company Number: 04-10-1372

PATIENT
  Age: 38 Year
  Sex: Male

DRUGS (1)
  1. CLOZAPINE [Suspect]
     Indication: PERSONALITY DISORDER
     Dosage: 50-500MG QD ORAL
     Route: 048
     Dates: start: 19990901

REACTIONS (2)
  - ABDOMINAL INJURY [None]
  - INTENTIONAL SELF-INJURY [None]
